FAERS Safety Report 10275775 (Version 1)
Quarter: 2014Q3

REPORT INFORMATION
  Report Type: Report from Study
  Country: CA (occurrence: CA)
  Receive Date: 20140703
  Receipt Date: 20140703
  Transmission Date: 20150326
  Serious: Yes (Hospitalization)
  Sender: FDA-Public Use
  Company Number: CA-JNJFOC-20140618478

PATIENT
  Age: 17 Year
  Sex: Female
  Weight: 53 kg

DRUGS (2)
  1. REMICADE [Suspect]
     Active Substance: INFLIXIMAB
     Indication: NEUTROPENIA
     Route: 042
     Dates: start: 20140626
  2. REMICADE [Suspect]
     Active Substance: INFLIXIMAB
     Indication: NEUTROPENIA
     Route: 042
     Dates: start: 201002

REACTIONS (2)
  - Viral pericarditis [Recovered/Resolved]
  - Off label use [Unknown]

NARRATIVE: CASE EVENT DATE: 201002
